FAERS Safety Report 4553276-4 (Version None)
Quarter: 2005Q1

REPORT INFORMATION
  Report Type: 
  Country: None (occurrence: None)
  Receive Date: 20050113
  Receipt Date: 20041228
  Transmission Date: 20050727
  Serious: Yes (Hospitalization)
  Sender: FDA-Public Use
  Company Number: DSA_25594_2005

PATIENT
  Age: 90 Year
  Sex: Female

DRUGS (14)
  1. DILTIAZEM HCL [Suspect]
     Indication: ATRIAL FIBRILLATION
     Dosage: 1 DF Q DAY PO
     Route: 048
  2. DILTIAZEM HCL [Suspect]
     Indication: ATRIAL FLUTTER
     Dosage: 1 DF Q DAY PO
     Route: 048
  3. HEMIGOXINE NATIVELLE [Suspect]
     Indication: ATRIAL FIBRILLATION
     Dosage: 0.125 MG Q DAY PO
     Route: 048
  4. HEMIGOXINE NATIVELLE [Suspect]
     Indication: ATRIAL FLUTTER
     Dosage: 0.125 MG Q DAY PO
     Route: 048
  5. HEMIGOXINE NATIVELLE [Suspect]
     Indication: ATRIAL FIBRILLATION
     Dosage: DF
  6. HEMIGOXINE NATIVELLE [Suspect]
     Indication: ATRIAL FLUTTER
     Dosage: DF
  7. TIAPRIDAL [Concomitant]
  8. ZESTRIL [Concomitant]
  9. LASILIX [Concomitant]
  10. DIFFU K [Concomitant]
  11. MOVICOL [Concomitant]
  12. LEXOMIL [Concomitant]
  13. KARDEGIC [Concomitant]
  14. STABLON [Concomitant]

REACTIONS (6)
  - ATRIAL FIBRILLATION [None]
  - BLOOD PRESSURE SYSTOLIC INCREASED [None]
  - C-REACTIVE PROTEIN INCREASED [None]
  - CARDIAC FAILURE CONGESTIVE [None]
  - CONDITION AGGRAVATED [None]
  - HEART RATE DECREASED [None]
